FAERS Safety Report 15223333 (Version 2)
Quarter: 2019Q3

REPORT INFORMATION
  Report Type: Spontaneous
  Country: GB (occurrence: GB)
  Receive Date: 20180731
  Receipt Date: 20190701
  Transmission Date: 20191004
  Serious: Yes (Congenital Anomaly, Other)
  Sender: FDA-Public Use
  Company Number: PHHY2018GB057148

PATIENT
  Sex: Female

DRUGS (4)
  1. LEVETIRACETAM. [Suspect]
     Active Substance: LEVETIRACETAM
     Indication: EPILEPSY
     Dosage: UNK
     Route: 064
  2. LEVETIRACETAM. [Suspect]
     Active Substance: LEVETIRACETAM
     Dosage: UNK
     Route: 063
  3. LAMOTRIGINE. [Suspect]
     Active Substance: LAMOTRIGINE
     Dosage: UNK
     Route: 064
  4. LAMOTRIGINE. [Suspect]
     Active Substance: LAMOTRIGINE
     Indication: EPILEPSY
     Dosage: UNK
     Route: 063

REACTIONS (7)
  - Premature baby [Unknown]
  - Congenital anomaly [Not Recovered/Not Resolved]
  - Exposure via breast milk [Unknown]
  - Maternal exposure during pregnancy [Unknown]
  - Maternal exposure during breast feeding [Unknown]
  - Foetal exposure during pregnancy [Unknown]
  - Low birth weight baby [Unknown]
